FAERS Safety Report 14927120 (Version 2)
Quarter: 2018Q2

REPORT INFORMATION
  Report Type: Spontaneous
  Country: GR (occurrence: GR)
  Receive Date: 20180523
  Receipt Date: 20180622
  Transmission Date: 20180711
  Serious: Yes (Other)
  Sender: FDA-Public Use
  Company Number: GR-TEVA-2018-GR-896658

PATIENT
  Sex: Male

DRUGS (1)
  1. DOCETAXEL. [Suspect]
     Active Substance: DOCETAXEL
     Indication: PROSTATIC SPECIFIC ANTIGEN INCREASED
     Dosage: 6 CYCLES

REACTIONS (1)
  - Pericardial effusion [Recovered/Resolved]
